FAERS Safety Report 13368698 (Version 2)
Quarter: 2017Q2

REPORT INFORMATION
  Report Type: Spontaneous
  Country: JP (occurrence: JP)
  Receive Date: 20170324
  Receipt Date: 20170414
  Transmission Date: 20170830
  Serious: Yes (Other)
  Sender: FDA-Public Use
  Company Number: JP-TEVA-2017-JP-000840J

PATIENT
  Age: 78 Year
  Sex: Male

DRUGS (5)
  1. MUCOSTA [Concomitant]
     Active Substance: REBAMIPIDE
     Dosage: 300 MILLIGRAM DAILY;
     Route: 048
  2. CEFTRIAXONE NA [Suspect]
     Active Substance: CEFTRIAXONE
     Indication: ENDOCARDITIS
     Dosage: 4 GRAM DAILY;
     Route: 065
  3. ACICLOVIR [Suspect]
     Active Substance: ACYCLOVIR
     Indication: HERPES ZOSTER
     Route: 065
  4. CEFAZOLIN SODIUM FOR INJECTION 2G ^TAIYO^ [Suspect]
     Active Substance: CEFAZOLIN SODIUM
     Indication: ENDOCARDITIS
     Route: 065
  5. PREDNISOLONE. [Concomitant]
     Active Substance: PREDNISOLONE
     Indication: SERONEGATIVE ARTHRITIS
     Dosage: 20 MILLIGRAM DAILY;
     Route: 048

REACTIONS (4)
  - Altered state of consciousness [Recovering/Resolving]
  - Toxic encephalopathy [Recovering/Resolving]
  - Pyrexia [Unknown]
  - Condition aggravated [Recovering/Resolving]
